FAERS Safety Report 8785538 (Version 2)
Quarter: 2012Q4

REPORT INFORMATION
  Report Type: 
  Country: AR (occurrence: AR)
  Receive Date: 20120914
  Receipt Date: 20120918
  Transmission Date: 20130627
  Serious: Yes (Other)
  Sender: FDA-Public Use
  Company Number: AR-PFIZER INC-2012222423

PATIENT
  Sex: Female
  Weight: 57 kg

DRUGS (4)
  1. AROMASIN [Suspect]
     Dosage: 25 mg, 1x/day
     Dates: start: 20120812, end: 20120911
  2. CARBAMAZEPINE [Concomitant]
     Dosage: 800 mg, 1x/day
  3. VALPROATE SODIUM [Concomitant]
     Dosage: 1500 mg, 1x/day
  4. PIRACETAM [Concomitant]
     Dosage: 400 mg, 1x/day

REACTIONS (3)
  - Capillary fragility [Unknown]
  - Vascular rupture [Unknown]
  - Rash [Unknown]
